FAERS Safety Report 12321405 (Version 1)
Quarter: 2016Q2

REPORT INFORMATION
  Report Type: Spontaneous
  Country: US (occurrence: None)
  Receive Date: 20160429
  Receipt Date: 20160429
  Transmission Date: 20160815
  Serious: No
  Sender: FDA-Public Use
  Company Number: None

PATIENT
  Age: 62 Year
  Sex: Male
  Weight: 81.65 kg

DRUGS (2)
  1. MRI MACHINE [Suspect]
     Active Substance: DEVICE
  2. FENTANYL TRANSDERMAL SYSTEM [Suspect]
     Active Substance: FENTANYL

REACTIONS (3)
  - Application site erythema [None]
  - Hyperaesthesia [None]
  - Post procedural complication [None]

NARRATIVE: CASE EVENT DATE: 20160426
